FAERS Safety Report 8087499-7 (Version None)
Quarter: 2012Q1

REPORT INFORMATION
  Report Type: 
  Country: None (occurrence: None)
  Receive Date: 20120128
  Receipt Date: 20110501
  Transmission Date: 20120608
  Serious: No
  Sender: FDA-Public Use
  Company Number: US-ABBOTT-11P-163-0722924-00

PATIENT
  Age: 67 Year
  Sex: Female

DRUGS (9)
  1. ANTARA (MICRONIZED) [Concomitant]
     Indication: PRODUCT USED FOR UNKNOWN INDICATION
     Dosage: 130 MILLIGRAMS DAILY
  2. NORVASC [Concomitant]
     Indication: HYPERTENSION
     Dosage: 5 MG DAILY
  3. LOVAZA [Concomitant]
     Indication: BLOOD CHOLESTEROL INCREASED
     Dosage: 1 GM - 4 CAPSULES PER DAY
  4. HUMIRA [Suspect]
     Indication: PSORIASIS
     Dates: start: 20100908, end: 20101215
  5. VITAMIN D [Concomitant]
     Indication: PRODUCT USED FOR UNKNOWN INDICATION
     Dosage: 2000 UNITS DAILY
  6. HUMIRA [Suspect]
     Indication: PRODUCT USED FOR UNKNOWN INDICATION
     Dates: start: 20110501
  7. AMBIEN [Concomitant]
     Indication: INSOMNIA
     Dosage: 5 MG
  8. FOLIC ACID [Concomitant]
     Indication: PRODUCT USED FOR UNKNOWN INDICATION
     Dosage: 1 MG DAILY
  9. SYNTHROID [Concomitant]
     Indication: BLOOD THYROID STIMULATING HORMONE DECREASED
     Dosage: 25 MCG

REACTIONS (3)
  - ARTHRALGIA [None]
  - DRUG INEFFECTIVE [None]
  - WRONG TECHNIQUE IN DRUG USAGE PROCESS [None]
